FAERS Safety Report 21494937 (Version 1)
Quarter: 2022Q4

REPORT INFORMATION
  Report Type: Spontaneous
  Country: US (occurrence: US)
  Receive Date: 20221022
  Receipt Date: 20221022
  Transmission Date: 20230113
  Serious: No
  Sender: FDA-Public Use
  Company Number: US-CELLTRION INC.-2022US004446

PATIENT

DRUGS (4)
  1. INFLECTRA [Suspect]
     Active Substance: INFLIXIMAB-DYYB
     Indication: Rash
     Dosage: INFUSE 400 MG EVERY 8 WEEKS QUANTITY:3 REFILLS: 5
     Route: 042
  2. INFLECTRA [Suspect]
     Active Substance: INFLIXIMAB-DYYB
     Indication: Rhinorrhoea
     Dosage: 400 MG (INFUSE 400MG WEEK 0,2,6 AND EVERY 8 WEEKS AFTER)
     Route: 042
     Dates: start: 20211109
  3. INFLECTRA [Suspect]
     Active Substance: INFLIXIMAB-DYYB
     Indication: Eye discharge
     Dosage: 400 MG (INFUSE 400MG WEEK 0,2,6 AND EVERY 8 WEEKS AFTER)
     Route: 042
     Dates: start: 20211204
  4. INFLECTRA [Suspect]
     Active Substance: INFLIXIMAB-DYYB
     Dosage: 400 MG (INFUSE 400MG WEEK 0,2,6 AND EVERY 8 WEEKS AFTER)
     Route: 042
     Dates: start: 20220103

REACTIONS (3)
  - Lacrimation increased [Recovered/Resolved]
  - Rhinorrhoea [Recovered/Resolved]
  - Off label use [Unknown]
